FAERS Safety Report 7403384-5 (Version None)
Quarter: 2011Q2

REPORT INFORMATION
  Report Type: 
  Country: None (occurrence: None)
  Receive Date: 20110408
  Receipt Date: 20101129
  Transmission Date: 20111010
  Serious: Yes (Hospitalization)
  Sender: FDA-Public Use
  Company Number: A0898607A

PATIENT
  Age: 60 Year
  Sex: Female

DRUGS (1)
  1. AVANDAMET [Suspect]
     Indication: TYPE 2 DIABETES MELLITUS
     Route: 048
     Dates: start: 20070221, end: 20070321

REACTIONS (2)
  - MYOCARDIAL INFARCTION [None]
  - HEART RATE IRREGULAR [None]
